FAERS Safety Report 5632910-1 (Version None)
Quarter: 2008Q1

REPORT INFORMATION
  Report Type: 
  Country: None (occurrence: None)
  Receive Date: 20080221
  Receipt Date: 20080208
  Transmission Date: 20080703
  Serious: Yes (Other)
  Sender: FDA-Public Use
  Company Number: US-AMGEN-US255907

PATIENT
  Sex: Male
  Weight: 67.6 kg

DRUGS (12)
  1. ARANESP [Suspect]
     Indication: ANAEMIA
     Route: 065
     Dates: start: 20060101
  2. EPOGEN [Suspect]
     Indication: ANAEMIA
     Route: 065
     Dates: start: 20060101
  3. HYDROCORTISONE [Concomitant]
     Route: 065
  4. VITAMIN D [Concomitant]
     Route: 065
  5. OSCAL [Concomitant]
     Route: 065
  6. FLORINEF [Concomitant]
     Route: 065
  7. CALCITRIOL [Concomitant]
     Route: 065
  8. FOLIC ACID [Concomitant]
     Route: 065
  9. VITAMIN B-12 [Concomitant]
     Route: 065
  10. IRON PREPARATIONS [Concomitant]
     Route: 065
  11. LEVOTHYROX [Concomitant]
     Route: 065
  12. JANUVIA [Concomitant]

REACTIONS (2)
  - APLASIA PURE RED CELL [None]
  - THROMBOTIC THROMBOCYTOPENIC PURPURA [None]
